FAERS Safety Report 25058272 (Version 1)
Quarter: 2025Q1

REPORT INFORMATION
  Report Type: Spontaneous
  Country: US (occurrence: None)
  Receive Date: 20250308
  Receipt Date: 20250308
  Transmission Date: 20250408
  Serious: Yes (Hospitalization)
  Sender: FDA-CTU
  Company Number: None

PATIENT
  Age: 67 Year
  Sex: Male
  Weight: 104.5 kg

DRUGS (7)
  1. CISPLATIN [Suspect]
     Active Substance: CISPLATIN
  2. Eupropion HCL XL 300mg [Concomitant]
  3. Entresto 49 mg-51 mg [Concomitant]
  4. METOPROLOL SUCCINATE [Concomitant]
     Active Substance: METOPROLOL SUCCINATE
  5. APIXABAN [Concomitant]
     Active Substance: APIXABAN
  6. ATORVASTATIN [Concomitant]
     Active Substance: ATORVASTATIN
  7. Tamsulosin O .4 mg [Concomitant]

REACTIONS (4)
  - Influenza [None]
  - Pneumonia [None]
  - Atrial fibrillation [None]
  - Cardiac failure congestive [None]

NARRATIVE: CASE EVENT DATE: 20250222
